FAERS Safety Report 23524472 (Version 2)
Quarter: 2024Q1

REPORT INFORMATION
  Report Type: Spontaneous
  Country: US (occurrence: US)
  Receive Date: 20240214
  Receipt Date: 20240312
  Transmission Date: 20240410
  Serious: Yes (Hospitalization)
  Sender: FDA-Public Use
  Company Number: US-SA-SAC20240212000940

PATIENT
  Age: 60 Year
  Sex: Female
  Weight: 79 kg

DRUGS (1)
  1. DUPIXENT [Suspect]
     Active Substance: DUPILUMAB
     Indication: Nasal polyps
     Dosage: 300 MG, QOW
     Route: 058

REACTIONS (3)
  - Mastectomy [Unknown]
  - Breast reconstruction [Unknown]
  - Surgery [Unknown]

NARRATIVE: CASE EVENT DATE: 20240201
